FAERS Safety Report 18950317 (Version 1)
Quarter: 2021Q1

REPORT INFORMATION
  Report Type: Spontaneous
  Country: US (occurrence: US)
  Receive Date: 20210228
  Receipt Date: 20210228
  Transmission Date: 20210420
  Serious: No
  Sender: FDA-Public Use
  Company Number: US-ROCHE-2717939

PATIENT
  Sex: Male

DRUGS (6)
  1. XOLAIR [Suspect]
     Active Substance: OMALIZUMAB
     Indication: PRODUCT USED FOR UNKNOWN INDICATION
     Dosage: EVERY MONTH
     Route: 065
  2. XOLAIR [Suspect]
     Active Substance: OMALIZUMAB
  3. XOLAIR [Suspect]
     Active Substance: OMALIZUMAB
  4. XOLAIR [Suspect]
     Active Substance: OMALIZUMAB
  5. XOLAIR [Suspect]
     Active Substance: OMALIZUMAB
  6. XOLAIR [Suspect]
     Active Substance: OMALIZUMAB
     Route: 065

REACTIONS (3)
  - No adverse event [Unknown]
  - Intentional product use issue [Unknown]
  - Off label use [Unknown]

NARRATIVE: CASE EVENT DATE: 202004
